FAERS Safety Report 22123184 (Version 1)
Quarter: 2023Q1

REPORT INFORMATION
  Report Type: Spontaneous
  Country: US (occurrence: US)
  Receive Date: 20230322
  Receipt Date: 20230322
  Transmission Date: 20230418
  Serious: No
  Sender: FDA-Public Use
  Company Number: US-ASCENDIS PHARMA-2023US001660

PATIENT

DRUGS (1)
  1. SKYTROFA [Suspect]
     Active Substance: LONAPEGSOMATROPIN-TCGD
     Indication: Growth hormone deficiency
     Dosage: 9.1 MILLIGRAM, WEEKLY
     Route: 065
     Dates: start: 20221223, end: 20230131

REACTIONS (8)
  - Obsessive-compulsive disorder [Not Recovered/Not Resolved]
  - Poor quality sleep [Not Recovered/Not Resolved]
  - Intentional self-injury [Not Recovered/Not Resolved]
  - Crying [Unknown]
  - Aggression [Not Recovered/Not Resolved]
  - Body temperature decreased [Unknown]
  - Respiration abnormal [Unknown]
  - Feeling cold [Unknown]
